FAERS Safety Report 5785900-2 (Version None)
Quarter: 2008Q2

REPORT INFORMATION
  Report Type: 
  Country: None (occurrence: None)
  Receive Date: 20080624
  Receipt Date: 20070620
  Transmission Date: 20081010
  Serious: No
  Sender: FDA-Public Use
  Company Number: US-ASTRAZENECA-2007UW14769

PATIENT
  Age: 45 Year
  Sex: Female
  Weight: 75.3 kg

DRUGS (9)
  1. PULMICORT-100 [Suspect]
     Route: 055
  2. NORVASC [Concomitant]
  3. NEXIUM [Concomitant]
  4. FIORICET [Concomitant]
  5. ASPIRIN [Concomitant]
  6. CYMBALTA [Concomitant]
  7. PROVIGIL [Concomitant]
  8. ZANAFLEX [Concomitant]
  9. FROVA [Concomitant]

REACTIONS (3)
  - COUGH [None]
  - INCREASED UPPER AIRWAY SECRETION [None]
  - NASAL CONGESTION [None]
